FAERS Safety Report 7224904-X (Version None)
Quarter: 2011Q1

REPORT INFORMATION
  Report Type: 
  Country: None (occurrence: None)
  Receive Date: 20110113
  Receipt Date: 20110103
  Transmission Date: 20110831
  Serious: Yes (Hospitalization)
  Sender: FDA-Public Use
  Company Number: GR-MPIJNJ-2010-06340

PATIENT

DRUGS (3)
  1. DEXAMETHASONE [Concomitant]
  2. ADRIAMYCIN PFS [Concomitant]
  3. VELCADE [Suspect]
     Indication: MULTIPLE MYELOMA

REACTIONS (1)
  - INFECTION [None]
